FAERS Safety Report 4334512-6 (Version None)
Quarter: 2004Q2

REPORT INFORMATION
  Report Type: 
  Country: None (occurrence: None)
  Receive Date: 20040407
  Receipt Date: 20040323
  Transmission Date: 20050107
  Serious: Yes (Death)
  Sender: FDA-Public Use
  Company Number: GB-GLAXOSMITHKLINE-B0327774A

PATIENT

DRUGS (4)
  1. BUSULPHAN [Suspect]
     Dosage: 20MGK UNKNOWN
     Route: 048
  2. ACTIVASE [Suspect]
     Indication: VENOOCCLUSIVE LIVER DISEASE
     Route: 042
  3. CYCLOPHOSPHAMIDE [Suspect]
     Dosage: 200MGK UNKNOWN
     Route: 042
  4. HEPARIN [Concomitant]
     Dosage: 5 PER DAY
     Route: 042

REACTIONS (2)
  - MULTI-ORGAN FAILURE [None]
  - VENOOCCLUSIVE LIVER DISEASE [None]
